FAERS Safety Report 16095592 (Version 1)
Quarter: 2019Q1

REPORT INFORMATION
  Report Type: Spontaneous
  Country: US (occurrence: US)
  Receive Date: 20190218
  Receipt Date: 20190218
  Transmission Date: 20190418
  Serious: No
  Sender: FDA-Public Use
  Company Number: None

PATIENT
  Age: 60 Year
  Sex: Female

DRUGS (1)
  1. ENBREL [Suspect]
     Active Substance: ETANERCEPT
     Indication: PSORIASIS
     Dosage: INJECT 50MG SUBCUTANEOUSLY TWO TIMES A WEEK 72-96 HOURS APART AS DIRECTED FOR 3 MONTHS
     Route: 058
     Dates: start: 201810

REACTIONS (2)
  - Thrombosis [None]
  - Muscle spasms [None]
